FAERS Safety Report 9112309 (Version 1)
Quarter: 2013Q1

REPORT INFORMATION
  Report Type: Spontaneous
  Country: US (occurrence: US)
  Receive Date: 20130219
  Receipt Date: 20130219
  Transmission Date: 20140127
  Serious: No
  Sender: FDA-Public Use
  Company Number: US-BRISTOL-MYERS SQUIBB COMPANY-16993958

PATIENT
  Age: 36 Year
  Sex: Female
  Weight: 85.26 kg

DRUGS (9)
  1. ORENCIA [Suspect]
     Dosage: LAST INF:11SEP12
     Route: 042
     Dates: start: 20120611, end: 2012
  2. HYDROCODONE [Concomitant]
     Dosage: APAP, 1DF: 5-500MG CAPS
     Route: 048
     Dates: start: 20120911
  3. FOLIC ACID [Concomitant]
     Dosage: 1 MG TABS
     Route: 048
     Dates: start: 20111208
  4. MELOXICAM [Concomitant]
     Route: 048
     Dates: start: 20120207
  5. OXYCODONE HCL + ACETAMINOPHEN [Concomitant]
  6. SLOW FE [Concomitant]
     Route: 048
     Dates: start: 20081112
  7. ULTRAM [Concomitant]
     Indication: PAIN
     Dosage: TAB, PRN
     Route: 048
     Dates: start: 20120808
  8. ERGOCALCIFEROL [Concomitant]
     Dosage: 1DF: 1TAB , STR: 50000IU CAPS
     Dates: start: 20120816
  9. METHOTREXATE [Concomitant]
     Dosage: 1DF: 1CC, STR: 25MG/ML
     Route: 058
     Dates: start: 20120207

REACTIONS (4)
  - Drug ineffective [Unknown]
  - Nausea [Unknown]
  - Weight decreased [Unknown]
  - Urinary tract infection [Unknown]
